FAERS Safety Report 25107240 (Version 2)
Quarter: 2025Q2

REPORT INFORMATION
  Report Type: Report from Study
  Country: US (occurrence: US)
  Receive Date: 20250321
  Receipt Date: 20250415
  Transmission Date: 20250717
  Serious: Yes (Other)
  Sender: ALEXION PHARMACEUTICALS
  Company Number: US-AstraZeneca-CH-00828079A

PATIENT

DRUGS (5)
  1. ULTOMIRIS [Suspect]
     Active Substance: RAVULIZUMAB-CWVZ
     Indication: Myasthenia gravis
  2. PREDNISONE [Concomitant]
     Active Substance: PREDNISONE
     Route: 065
  3. LASIX [Concomitant]
     Active Substance: FUROSEMIDE
     Route: 065
  4. OMEPRAZOLE [Concomitant]
     Active Substance: OMEPRAZOLE
     Route: 065
  5. VITAMINS [Concomitant]
     Active Substance: VITAMINS
     Route: 065

REACTIONS (10)
  - Cerebrovascular accident [Unknown]
  - Malaise [Unknown]
  - Dysgraphia [Unknown]
  - Dysphagia [Unknown]
  - Eye disorder [Unknown]
  - Muscle disorder [Unknown]
  - Therapeutic response shortened [Unknown]
  - Symptom recurrence [Unknown]
  - Oedema peripheral [Unknown]
  - Memory impairment [Unknown]
